FAERS Safety Report 21100198 (Version 1)
Quarter: 2022Q3

REPORT INFORMATION
  Report Type: Spontaneous
  Country: US (occurrence: None)
  Receive Date: 20220719
  Receipt Date: 20220719
  Transmission Date: 20221027
  Serious: Yes (Hospitalization)
  Sender: FDA-Public Use
  Company Number: None

PATIENT
  Age: 84 Year
  Sex: Female
  Weight: 63 kg

DRUGS (15)
  1. BEBTELOVIMAB [Suspect]
     Active Substance: BEBTELOVIMAB
     Indication: COVID-19
     Dosage: OTHER FREQUENCY : ONCE;?
     Route: 042
     Dates: start: 20220718, end: 20220718
  2. SERTRALINE HYDROCHLORIDE [Concomitant]
     Active Substance: SERTRALINE HYDROCHLORIDE
  3. FAMOTIDINE [Concomitant]
     Active Substance: FAMOTIDINE
  4. PREDNISONE [Concomitant]
     Active Substance: PREDNISONE
  5. nilotinib 150 mg [Concomitant]
  6. SOTALOL [Concomitant]
     Active Substance: SOTALOL
  7. MONTELUKAST SODIUM [Concomitant]
     Active Substance: MONTELUKAST SODIUM
  8. ATORVASTATIN [Concomitant]
     Active Substance: ATORVASTATIN
  9. APIXABAN [Concomitant]
     Active Substance: APIXABAN
  10. albuterol 90 mcg inhaler [Concomitant]
  11. diltiazem 240 mg [Concomitant]
  12. mirabegron 25 mg [Concomitant]
  13. ADVAIR DISKUS [Concomitant]
     Active Substance: FLUTICASONE PROPIONATE\SALMETEROL XINAFOATE
  14. levalbuterol 0.31 mg/3mL nebulizer [Concomitant]
  15. benralizumab 30 mg/mL [Concomitant]

REACTIONS (1)
  - Tachycardia [None]

NARRATIVE: CASE EVENT DATE: 20220718
